FAERS Safety Report 4318210-0 (Version None)
Quarter: 2004Q1

REPORT INFORMATION
  Report Type: 
  Country: None (occurrence: None)
  Receive Date: 20040317
  Receipt Date: 20031212
  Transmission Date: 20041129
  Serious: Yes (Death, Hospitalization, Other)
  Sender: FDA-Public Use
  Company Number: JP-BRISTOL-MYERS SQUIBB COMPANY-12462594

PATIENT
  Age: 91 Year
  Sex: Male

DRUGS (9)
  1. GATIFLO [Suspect]
     Indication: PNEUMONIA
     Route: 048
     Dates: start: 20031208, end: 20031209
  2. GLIMICRON [Concomitant]
     Dosage: REPORTED DOSE: 160 MG/DAY AND 80 MG/DAY
     Route: 048
     Dates: start: 20031203, end: 20031209
  3. TSUMURA CHOREI-TO [Concomitant]
     Route: 048
     Dates: start: 20031203, end: 20031209
  4. FLIVAS [Concomitant]
     Route: 048
     Dates: start: 20031203, end: 20031209
  5. MARZULENE-S [Concomitant]
     Route: 048
     Dates: start: 20031203, end: 20031209
  6. AMOBAN [Concomitant]
     Route: 048
     Dates: start: 20031203, end: 20031209
  7. MUCODYNE [Concomitant]
     Route: 048
     Dates: start: 20031203, end: 20031209
  8. OMEPRAZOLE [Concomitant]
     Route: 048
     Dates: start: 20031203, end: 20031209
  9. EVIPROSTAT [Concomitant]
     Route: 048
     Dates: start: 20031203, end: 20031209

REACTIONS (4)
  - DELIRIUM [None]
  - HYPOGLYCAEMIA [None]
  - LOSS OF CONSCIOUSNESS [None]
  - PNEUMONIA [None]
